FAERS Safety Report 8451342-4 (Version None)
Quarter: 2012Q2

REPORT INFORMATION
  Report Type: 
  Country: None (occurrence: None)
  Receive Date: 20120620
  Receipt Date: 20120223
  Transmission Date: 20120825
  Serious: No
  Sender: FDA-Public Use
  Company Number: US-VERTEX PHARMACEUTICALS INC.-AE-2012-002720

PATIENT
  Sex: Male
  Weight: 107.14 kg

DRUGS (5)
  1. VALTREX [Concomitant]
     Indication: HERPES VIRUS INFECTION
  2. PEGASYS [Concomitant]
     Indication: HEPATITIS C
     Route: 058
     Dates: start: 20120127
  3. ALEGRA [Concomitant]
     Indication: HYPERSENSITIVITY
  4. INCIVEK [Suspect]
     Indication: HEPATITIS C
     Route: 048
     Dates: start: 20120127
  5. RIBAVIRIN [Concomitant]
     Indication: HEPATITIS C
     Route: 048
     Dates: start: 20120127

REACTIONS (3)
  - DIZZINESS [None]
  - WEIGHT INCREASED [None]
  - HEADACHE [None]
